FAERS Safety Report 4837709-1 (Version None)
Quarter: 2005Q4

REPORT INFORMATION
  Report Type: 
  Country: None (occurrence: None)
  Receive Date: 20051128
  Receipt Date: 20051114
  Transmission Date: 20060501
  Serious: Yes (Other)
  Sender: FDA-Public Use
  Company Number: IN-NOVOPROD-248643

PATIENT
  Age: 60 Year
  Sex: Male

DRUGS (1)
  1. HUMAN MIXTARD 30 [Suspect]
     Indication: ILL-DEFINED DISORDER
     Dosage: 45 IU, QD
     Route: 058
     Dates: start: 20051025, end: 20051027

REACTIONS (2)
  - ABSCESS LIMB [None]
  - INJECTION SITE SWELLING [None]
